FAERS Safety Report 6225176-5 (Version None)
Quarter: 2009Q2

REPORT INFORMATION
  Report Type: 
  Country: None (occurrence: None)
  Receive Date: 20090612
  Receipt Date: 20090407
  Transmission Date: 20091009
  Serious: No
  Sender: FDA-Public Use
  Company Number: US-ABBOTT-09P-163-0567404-00

PATIENT
  Sex: Male
  Weight: 84.898 kg

DRUGS (5)
  1. HUMIRA [Suspect]
     Indication: CROHN'S DISEASE
     Route: 058
     Dates: start: 20070201
  2. PENTASA [Concomitant]
     Indication: CROHN'S DISEASE
  3. CODEINE [Concomitant]
     Indication: PAIN
  4. LOMOTIL [Concomitant]
     Indication: DIARRHOEA
  5. VITAMIN B-12 [Concomitant]
     Indication: DRUG USE FOR UNKNOWN INDICATION

REACTIONS (3)
  - BLOOD URINE PRESENT [None]
  - HAEMATURIA [None]
  - URINARY TRACT INFECTION [None]
